FAERS Safety Report 23706434 (Version 2)
Quarter: 2024Q2

REPORT INFORMATION
  Report Type: Spontaneous
  Country: US (occurrence: US)
  Receive Date: 20240404
  Receipt Date: 20240412
  Transmission Date: 20240715
  Serious: Yes (Other)
  Sender: FDA-Public Use
  Company Number: US-BAYER-2024A048257

PATIENT
  Age: 62 Year
  Sex: Female

DRUGS (1)
  1. BAYER LOW DOSE [Suspect]
     Active Substance: ASPIRIN
     Indication: Pain
     Dosage: 4 DF
     Route: 048

REACTIONS (2)
  - Choking [Unknown]
  - Product contamination physical [None]

NARRATIVE: CASE EVENT DATE: 20240330
